FAERS Safety Report 6723580-X (Version None)
Quarter: 2010Q2

REPORT INFORMATION
  Report Type: 
  Country: None (occurrence: None)
  Receive Date: 20100513
  Receipt Date: 20100506
  Transmission Date: 20101027
  Serious: Yes (Hospitalization, Other)
  Sender: FDA-Public Use
  Company Number: US-ASTRAZENECA-2009UW04370

PATIENT
  Age: 62 Year
  Sex: Female

DRUGS (10)
  1. ARIMIDEX [Suspect]
     Indication: BREAST CANCER
     Route: 048
     Dates: start: 20060101
  2. SIMVASTATIN [Concomitant]
  3. DIAZEPAM [Concomitant]
  4. ASPIRIN [Concomitant]
  5. VICODIN [Concomitant]
  6. GABERPERTIN [Concomitant]
  7. HYCODOHL [Concomitant]
  8. ACTONEL [Concomitant]
  9. VITAMINS [Concomitant]
  10. CALCIUM WITH D [Concomitant]

REACTIONS (7)
  - ANXIETY [None]
  - BONE DISORDER [None]
  - CERVICAL SPINAL STENOSIS [None]
  - HYPOAESTHESIA [None]
  - OSTEOARTHRITIS [None]
  - ROTATOR CUFF REPAIR [None]
  - SCOLIOSIS [None]
